FAERS Safety Report 19670386 (Version 1)
Quarter: 2021Q3

REPORT INFORMATION
  Report Type: Report from Study
  Country: US (occurrence: US)
  Receive Date: 20210806
  Receipt Date: 20210806
  Transmission Date: 20211014
  Serious: Yes (Other)
  Sender: FDA-Public Use
  Company Number: US-SAOL THERAPEUTICS-2021SAO00145

PATIENT
  Age: 20 Year
  Sex: Male
  Weight: 36.28 kg

DRUGS (2)
  1. LIORESAL [Suspect]
     Active Substance: BACLOFEN
     Dosage: 200.02 ?G, \DAY
     Route: 037
     Dates: start: 20161103
  2. LIORESAL [Suspect]
     Active Substance: BACLOFEN
     Indication: CEREBRAL PALSY
     Dosage: 150.17 ?G, \DAY
     Route: 037
     Dates: start: 20161017, end: 20161103

REACTIONS (2)
  - Cerebrospinal fluid leakage [Unknown]
  - Incision site swelling [Recovered/Resolved]

NARRATIVE: CASE EVENT DATE: 20161103
